FAERS Safety Report 7052885-0 (Version None)
Quarter: 2010Q4

REPORT INFORMATION
  Report Type: 
  Country: None (occurrence: None)
  Receive Date: 20101020
  Receipt Date: 20101014
  Transmission Date: 20110411
  Serious: Yes (Hospitalization)
  Sender: FDA-Public Use
  Company Number: US-BIOGENIDEC-2010BI035230

PATIENT
  Age: 62 Year
  Sex: Male

DRUGS (2)
  1. TYSABRI [Suspect]
     Indication: MULTIPLE SCLEROSIS
     Route: 042
     Dates: start: 20071221
  2. AMYPRA [Concomitant]
     Indication: GAIT DISTURBANCE
     Dates: start: 20100603

REACTIONS (2)
  - ANGINA PECTORIS [None]
  - HYPERTENSION [None]
